FAERS Safety Report 8152816-6 (Version None)
Quarter: 2012Q1

REPORT INFORMATION
  Report Type: 
  Country: None (occurrence: None)
  Receive Date: 20120216
  Receipt Date: 20120216
  Transmission Date: 20120608
  Serious: Yes (Hospitalization)
  Sender: FDA-Public Use
  Company Number: None

PATIENT
  Sex: Male

DRUGS (6)
  1. NUCYNTA [Concomitant]
  2. TRAZODONE HCL [Concomitant]
  3. PEGASYS [Suspect]
     Indication: HEPATITIS C
     Dosage: 180 MCG PFS SUBCUTANEOUSLY WEEKLY
     Route: 058
     Dates: start: 20110908, end: 20111229
  4. OXYCODONE HCL [Concomitant]
  5. RIBAVIRIN [Concomitant]
  6. XIFAXAN [Concomitant]

REACTIONS (1)
  - HALLUCINATION [None]
